FAERS Safety Report 9298278 (Version 1)
Quarter: 2012Q4

REPORT INFORMATION
  Report Type: Spontaneous
  Country: US (occurrence: None)
  Receive Date: 20121001
  Receipt Date: 20121001
  Transmission Date: 20130627
  Serious: Yes (Other)
  Sender: FDA-Public Use
  Company Number: KAD201205-000298

PATIENT
  Age: 25 Year
  Sex: Female

DRUGS (5)
  1. RIBAVIRIN (RIBAVIRIN) [Suspect]
     Route: 048
     Dates: start: 20110802, end: 20120105
  2. PEGASYS [Suspect]
     Dates: start: 20110802, end: 20120105
  3. VITAMINS [Concomitant]
  4. METHADONE [Concomitant]
  5. MACROBID [Concomitant]

REACTIONS (2)
  - Exposure during pregnancy [None]
  - Urinary tract infection [None]
